FAERS Safety Report 6160879-2 (Version None)
Quarter: 2009Q2

REPORT INFORMATION
  Report Type: 
  Country: None (occurrence: None)
  Receive Date: 20090420
  Receipt Date: 20090409
  Transmission Date: 20091009
  Serious: Yes (Hospitalization)
  Sender: FDA-Public Use
  Company Number: GB-BAXTER-2009BH006020

PATIENT
  Age: 65 Year
  Sex: Male
  Weight: 72 kg

DRUGS (12)
  1. IFOSFAMIDE [Suspect]
     Indication: HODGKIN'S DISEASE
     Route: 042
     Dates: start: 20090320, end: 20090323
  2. ALLOPURINOL [Concomitant]
     Indication: PROPHYLAXIS
     Route: 048
     Dates: start: 20090319
  3. AMOXICILLIN [Concomitant]
     Indication: OTITIS MEDIA
     Route: 065
     Dates: start: 20090320, end: 20090327
  4. AMOXICILLIN [Concomitant]
     Indication: SINUSITIS
     Route: 065
     Dates: start: 20090320, end: 20090327
  5. CO-TRIMOXAZOLE [Concomitant]
     Indication: PROPHYLAXIS
     Route: 048
     Dates: start: 20090319
  6. DEXAMETHASONE TAB [Concomitant]
     Indication: ANTIEMETIC SUPPORTIVE CARE
     Route: 065
     Dates: start: 20090319
  7. FILGRASTIM [Concomitant]
     Indication: PROPHYLAXIS
     Route: 058
  8. METOCLOPRAMIDE [Concomitant]
     Indication: ANTIEMETIC SUPPORTIVE CARE
     Route: 065
     Dates: start: 20090319
  9. ONDANSETRON [Concomitant]
     Indication: ANTIEMETIC SUPPORTIVE CARE
     Route: 048
     Dates: start: 20090320
  10. OTOMIZE [Concomitant]
     Indication: OTITIS MEDIA
     Route: 065
  11. SENNA [Concomitant]
     Indication: CONSTIPATION
     Route: 048
     Dates: start: 20090319
  12. METHYLENE BLUE [Concomitant]
     Indication: DRUG USE FOR UNKNOWN INDICATION
     Route: 042
     Dates: start: 20090324

REACTIONS (9)
  - BLOOD PRESSURE ABNORMAL [None]
  - CONFUSIONAL STATE [None]
  - DISORIENTATION [None]
  - DIZZINESS [None]
  - GLASGOW COMA SCALE ABNORMAL [None]
  - SOCIAL AVOIDANT BEHAVIOUR [None]
  - TREMOR [None]
  - VISUAL ACUITY REDUCED [None]
  - VOMITING [None]
